FAERS Safety Report 24678072 (Version 2)
Quarter: 2024Q4

REPORT INFORMATION
  Report Type: Spontaneous
  Country: CA (occurrence: CA)
  Receive Date: 20241129
  Receipt Date: 20241226
  Transmission Date: 20250115
  Serious: Yes (Death, Other)
  Sender: ASTELLAS
  Company Number: CA-ASTELLAS-2024-AER-020975

PATIENT
  Age: 43 Year
  Sex: Female
  Weight: 96 kg

DRUGS (102)
  1. MYRBETRIQ [Suspect]
     Active Substance: MIRABEGRON
     Indication: Product used for unknown indication
     Dosage: TABLET EXTENDED RELEASE
     Route: 065
  2. MYRBETRIQ [Suspect]
     Active Substance: MIRABEGRON
     Route: 048
  3. ACETAMINOPHEN AND CODEINE [Suspect]
     Active Substance: ACETAMINOPHEN\CODEINE PHOSPHATE
     Indication: Rheumatoid arthritis
     Route: 065
  4. ACTEMRA [Suspect]
     Active Substance: TOCILIZUMAB
     Indication: Rheumatoid arthritis
     Route: 065
  5. ACTEMRA [Suspect]
     Active Substance: TOCILIZUMAB
     Route: 042
  6. ACTEMRA [Suspect]
     Active Substance: TOCILIZUMAB
     Route: 042
  7. ACTEMRA [Suspect]
     Active Substance: TOCILIZUMAB
     Route: 042
  8. ACTEMRA [Suspect]
     Active Substance: TOCILIZUMAB
     Route: 042
  9. ACTEMRA [Suspect]
     Active Substance: TOCILIZUMAB
     Route: 058
  10. ADALIMUMAB [Suspect]
     Active Substance: ADALIMUMAB
     Indication: Rheumatoid arthritis
     Route: 065
  11. ADALIMUMAB [Suspect]
     Active Substance: ADALIMUMAB
     Route: 058
  12. ADALIMUMAB [Suspect]
     Active Substance: ADALIMUMAB
     Route: 058
  13. AIMOVIG [Suspect]
     Active Substance: ERENUMAB\ERENUMAB-AOOE
     Indication: Rheumatoid arthritis
     Route: 065
  14. AIMOVIG [Suspect]
     Active Substance: ERENUMAB\ERENUMAB-AOOE
     Indication: Migraine
     Route: 065
  15. ATOMOXETINE [Suspect]
     Active Substance: ATOMOXETINE HYDROCHLORIDE
     Indication: Migraine
     Route: 065
  16. ATOMOXETINE [Suspect]
     Active Substance: ATOMOXETINE HYDROCHLORIDE
     Route: 065
  17. AZATHIOPRINE [Suspect]
     Active Substance: AZATHIOPRINE
     Indication: Product used for unknown indication
     Route: 065
  18. BERINERT [Suspect]
     Active Substance: HUMAN C1-ESTERASE INHIBITOR
     Indication: Product used for unknown indication
     Route: 065
  19. BETAMETHASONE [Suspect]
     Active Substance: BETAMETHASONE
     Indication: Product used for unknown indication
     Route: 065
  20. BOTULINUM TOXIN TYPE A [Suspect]
     Active Substance: BOTULINUM TOXIN TYPE A
     Indication: Product used for unknown indication
     Dosage: POWDER FOR SOLUTION
     Route: 030
  21. BUPRENORPHINE [Suspect]
     Active Substance: BUPRENORPHINE
     Indication: Product used for unknown indication
     Route: 065
  22. CALCIUM ASCORBATE [Suspect]
     Active Substance: CALCIUM ASCORBATE
     Indication: Product used for unknown indication
     Route: 065
  23. CANDESARTAN [Suspect]
     Active Substance: CANDESARTAN
     Indication: Rheumatoid arthritis
     Route: 048
  24. CANDESARTAN [Suspect]
     Active Substance: CANDESARTAN
     Indication: Migraine
     Route: 048
  25. CELECOXIB [Suspect]
     Active Substance: CELECOXIB
     Indication: Product used for unknown indication
     Route: 048
  26. CELECOXIB [Suspect]
     Active Substance: CELECOXIB
     Route: 048
  27. CETIRIZINE [Suspect]
     Active Substance: CETIRIZINE HYDROCHLORIDE
     Indication: Rheumatoid arthritis
     Route: 048
  28. CETIRIZINE [Suspect]
     Active Substance: CETIRIZINE HYDROCHLORIDE
     Route: 048
  29. CETIRIZINE [Suspect]
     Active Substance: CETIRIZINE HYDROCHLORIDE
     Route: 065
  30. CETIRIZINE [Suspect]
     Active Substance: CETIRIZINE HYDROCHLORIDE
     Route: 065
  31. CETIRIZINE [Suspect]
     Active Substance: CETIRIZINE HYDROCHLORIDE
     Route: 048
  32. CETIRIZINE [Suspect]
     Active Substance: CETIRIZINE HYDROCHLORIDE
     Route: 048
  33. CETIRIZINE [Suspect]
     Active Substance: CETIRIZINE HYDROCHLORIDE
     Route: 048
  34. CETIRIZINE [Suspect]
     Active Substance: CETIRIZINE HYDROCHLORIDE
     Route: 065
  35. CETIRIZINE [Suspect]
     Active Substance: CETIRIZINE HYDROCHLORIDE
     Route: 048
  36. CETIRIZINE [Suspect]
     Active Substance: CETIRIZINE HYDROCHLORIDE
     Route: 065
  37. CETIRIZINE [Suspect]
     Active Substance: CETIRIZINE HYDROCHLORIDE
     Route: 048
  38. CETIRIZINE [Suspect]
     Active Substance: CETIRIZINE HYDROCHLORIDE
     Route: 065
  39. CIMZIA [Suspect]
     Active Substance: CERTOLIZUMAB PEGOL
     Indication: Rheumatoid arthritis
     Route: 058
  40. CIMZIA [Suspect]
     Active Substance: CERTOLIZUMAB PEGOL
     Indication: Psoriasis
     Route: 048
  41. CHOLECALCIFEROL [Suspect]
     Active Substance: CHOLECALCIFEROL
     Indication: Product used for unknown indication
     Route: 048
  42. CORTISONE ACETATE [Suspect]
     Active Substance: CORTISONE ACETATE
     Indication: Rheumatoid arthritis
     Route: 061
  43. COSENTYX [Suspect]
     Active Substance: SECUKINUMAB
     Indication: Psoriatic arthropathy
     Route: 048
  44. CYCLOBENZAPRINE [Suspect]
     Active Substance: CYCLOBENZAPRINE
     Indication: Product used for unknown indication
     Route: 048
  45. DESOXIMETASONE [Suspect]
     Active Substance: DESOXIMETASONE
     Indication: Rheumatoid arthritis
     Route: 058
  46. DESOXIMETASONE [Suspect]
     Active Substance: DESOXIMETASONE
     Route: 048
  47. DESOXIMETASONE [Suspect]
     Active Substance: DESOXIMETASONE
     Route: 058
  48. DICLOFENAC [Suspect]
     Active Substance: DICLOFENAC
     Indication: Product used for unknown indication
     Route: 048
  49. DOMPERIDONE [Suspect]
     Active Substance: DOMPERIDONE
     Indication: Product used for unknown indication
     Route: 058
  50. ERELZI [Suspect]
     Active Substance: ETANERCEPT-SZZS
     Indication: Rheumatoid arthritis
     Route: 058
  51. ERGOCALCIFEROL [Suspect]
     Active Substance: ERGOCALCIFEROL
     Indication: Product used for unknown indication
     Route: 058
  52. FINACEA [Suspect]
     Active Substance: AZELAIC ACID
     Indication: Product used for unknown indication
     Route: 058
  53. FLUMETHASONE PIVALATE [Suspect]
     Active Substance: FLUMETHASONE PIVALATE
     Indication: Product used for unknown indication
     Route: 058
  54. FLUTICASONE [Suspect]
     Active Substance: FLUTICASONE
     Indication: Product used for unknown indication
     Route: 058
  55. FOLIC ACID [Suspect]
     Active Substance: FOLIC ACID
     Indication: Rheumatoid arthritis
     Route: 058
  56. FOLIC ACID [Suspect]
     Active Substance: FOLIC ACID
     Route: 048
  57. FOLIC ACID [Suspect]
     Active Substance: FOLIC ACID
     Route: 058
  58. FOLIC ACID [Suspect]
     Active Substance: FOLIC ACID
     Route: 058
  59. GOLD SODIUM THIOMALATE [Suspect]
     Active Substance: GOLD SODIUM THIOMALATE
     Indication: Product used for unknown indication
     Route: 030
  60. FOSAMAX [Suspect]
     Active Substance: ALENDRONATE SODIUM
     Indication: Rheumatoid arthritis
     Route: 065
  61. HYDROMORPHONE HYDROCHLORIDE [Suspect]
     Active Substance: HYDROMORPHONE HYDROCHLORIDE
     Indication: Product used for unknown indication
     Route: 065
  62. HYDROMORPHONE HYDROCHLORIDE [Suspect]
     Active Substance: HYDROMORPHONE HYDROCHLORIDE
     Route: 065
  63. HYDROMORPHONE HYDROCHLORIDE [Suspect]
     Active Substance: HYDROMORPHONE HYDROCHLORIDE
     Route: 065
  64. HYDROMORPHONE HYDROCHLORIDE [Suspect]
     Active Substance: HYDROMORPHONE HYDROCHLORIDE
     Route: 065
  65. HYDROXYCHLOROQUINE [Suspect]
     Active Substance: HYDROXYCHLOROQUINE
     Indication: Rheumatoid arthritis
     Route: 048
  66. HYDROXYCHLOROQUINE [Suspect]
     Active Substance: HYDROXYCHLOROQUINE
     Route: 048
  67. HYDROXYCHLOROQUINE [Suspect]
     Active Substance: HYDROXYCHLOROQUINE
     Route: 048
  68. INFLIXIMAB [Suspect]
     Active Substance: INFLIXIMAB
     Indication: Rheumatoid arthritis
     Route: 065
  69. LAMOTRIGINE [Suspect]
     Active Substance: LAMOTRIGINE
     Indication: Product used for unknown indication
     Route: 048
  70. LAMOTRIGINE [Suspect]
     Active Substance: LAMOTRIGINE
     Route: 048
  71. LAMOTRIGINE [Suspect]
     Active Substance: LAMOTRIGINE
     Route: 065
  72. LEFLUNOMIDE [Suspect]
     Active Substance: LEFLUNOMIDE
     Indication: Rheumatoid arthritis
     Route: 048
  73. LEFLUNOMIDE [Suspect]
     Active Substance: LEFLUNOMIDE
     Route: 048
  74. LEVOMILNACIPRAN [Suspect]
     Active Substance: LEVOMILNACIPRAN
     Indication: Product used for unknown indication
     Route: 048
  75. MAGNESIUM [Suspect]
     Active Substance: MAGNESIUM
     Indication: Product used for unknown indication
     Route: 048
  76. METHOTREXATE [Suspect]
     Active Substance: METHOTREXATE
     Indication: Rheumatoid arthritis
     Route: 048
  77. METHOTREXATE [Suspect]
     Active Substance: METHOTREXATE
     Route: 048
  78. METHYLPREDNISOLONE [Suspect]
     Active Substance: METHYLPREDNISOLONE
     Indication: Product used for unknown indication
     Route: 048
  79. MINOCYCLINE [Suspect]
     Active Substance: MINOCYCLINE HYDROCHLORIDE
     Indication: Product used for unknown indication
     Route: 048
  80. NAPROXEN [Suspect]
     Active Substance: NAPROXEN
     Indication: Product used for unknown indication
     Route: 048
  81. NUCALA [Suspect]
     Active Substance: MEPOLIZUMAB
     Indication: Product used for unknown indication
     Route: 048
  82. ORENCIA [Suspect]
     Active Substance: ABATACEPT
     Indication: Rheumatoid arthritis
     Route: 042
  83. OTEZLA [Suspect]
     Active Substance: APREMILAST
     Indication: Product used for unknown indication
     Route: 048
  84. OXYCODONE [Suspect]
     Active Substance: OXYCODONE
     Indication: Product used for unknown indication
     Route: 048
  85. PANTOPRAZOLE [Suspect]
     Active Substance: PANTOPRAZOLE
     Indication: Product used for unknown indication
     Route: 048
  86. PHENYLEPHRINE HYDROCHLORIDE [Suspect]
     Active Substance: PHENYLEPHRINE HYDROCHLORIDE
     Indication: Rheumatoid arthritis
     Route: 030
  87. PHOSPHORUS [Suspect]
     Active Substance: PHOSPHORUS
     Indication: Product used for unknown indication
     Route: 048
  88. RITUXIMAB [Suspect]
     Active Substance: RITUXIMAB
     Indication: Rheumatoid arthritis
     Route: 058
  89. RITUXIMAB [Suspect]
     Active Substance: RITUXIMAB
     Route: 065
  90. RITUXIMAB [Suspect]
     Active Substance: RITUXIMAB
     Route: 042
  91. RITUXIMAB [Suspect]
     Active Substance: RITUXIMAB
     Route: 043
  92. SULFASALAZINE [Suspect]
     Active Substance: SULFASALAZINE
     Indication: Rheumatoid arthritis
     Route: 048
  93. SULFASALAZINE [Suspect]
     Active Substance: SULFASALAZINE
     Route: 048
  94. SULFASALAZINE [Suspect]
     Active Substance: SULFASALAZINE
     Route: 048
  95. SULFASALAZINE [Suspect]
     Active Substance: SULFASALAZINE
     Route: 048
  96. SULFASALAZINE [Suspect]
     Active Substance: SULFASALAZINE
     Route: 048
  97. SULFASALAZINE [Suspect]
     Active Substance: SULFASALAZINE
     Route: 058
  98. SULFASALAZINE [Suspect]
     Active Substance: SULFASALAZINE
     Route: 048
  99. SULFASALAZINE [Suspect]
     Active Substance: SULFASALAZINE
     Route: 048
  100. SULFASALAZINE [Suspect]
     Active Substance: SULFASALAZINE
     Route: 048
  101. TRIAMCINOLONE [Suspect]
     Active Substance: TRIAMCINOLONE
     Indication: Product used for unknown indication
     Route: 048
  102. XELJANZ [Suspect]
     Active Substance: TOFACITINIB CITRATE
     Indication: Rheumatoid arthritis
     Route: 048

REACTIONS (69)
  - Breast cancer stage III [Fatal]
  - Duodenal ulcer perforation [Fatal]
  - Epilepsy [Unknown]
  - Pemphigus [Unknown]
  - Pneumonia [Unknown]
  - Psoriatic arthropathy [Unknown]
  - Rheumatoid arthritis [Unknown]
  - Systemic lupus erythematosus [Unknown]
  - Type 2 diabetes mellitus [Unknown]
  - Abdominal pain upper [Unknown]
  - Anti-cyclic citrullinated peptide antibody positive [Unknown]
  - Arthralgia [Unknown]
  - Asthenia [Unknown]
  - Back injury [Unknown]
  - Blepharospasm [Unknown]
  - Blister [Unknown]
  - Bursitis [Unknown]
  - C-reactive protein increased [Unknown]
  - Confusional state [Unknown]
  - Depression [Unknown]
  - Dizziness [Unknown]
  - Drug hypersensitivity [Unknown]
  - Drug intolerance [Unknown]
  - Dry mouth [Unknown]
  - Fibromyalgia [Unknown]
  - Folliculitis [Unknown]
  - Gait inability [Unknown]
  - Gastrooesophageal reflux disease [Unknown]
  - General physical health deterioration [Unknown]
  - Glossodynia [Unknown]
  - Helicobacter infection [Unknown]
  - Hepatic enzyme increased [Unknown]
  - Hypercholesterolaemia [Unknown]
  - Hypertension [Unknown]
  - Hypoaesthesia [Unknown]
  - Impaired healing [Unknown]
  - Infusion related reaction [Unknown]
  - Infusion site reaction [Unknown]
  - Irritable bowel syndrome [Unknown]
  - Liver function test increased [Unknown]
  - Lung disorder [Unknown]
  - Muscle injury [Unknown]
  - Muscle spasms [Unknown]
  - Muscular weakness [Unknown]
  - Musculoskeletal pain [Unknown]
  - Nasopharyngitis [Unknown]
  - Neck pain [Unknown]
  - Night sweats [Unknown]
  - Obesity [Unknown]
  - Onychomadesis [Unknown]
  - Osteoarthritis [Unknown]
  - Paraesthesia [Unknown]
  - Peripheral swelling [Unknown]
  - Peripheral venous disease [Unknown]
  - Sleep disorder [Unknown]
  - Stomatitis [Unknown]
  - Synovitis [Unknown]
  - Taste disorder [Unknown]
  - Urticaria [Unknown]
  - Wheezing [Unknown]
  - Wound infection [Unknown]
  - Facet joint syndrome [Unknown]
  - Maternal exposure during pregnancy [Unknown]
  - Contraindicated product administered [Unknown]
  - Product quality issue [Unknown]
  - Treatment failure [Unknown]
  - Intentional product use issue [Unknown]
  - Therapeutic product effect decreased [Unknown]
  - Product use in unapproved indication [Unknown]
